FAERS Safety Report 6259887-2 (Version None)
Quarter: 2009Q3

REPORT INFORMATION
  Report Type: 
  Country: None (occurrence: None)
  Receive Date: 20090702
  Receipt Date: 20090702
  Transmission Date: 20100115
  Serious: Yes (Hospitalization)
  Sender: FDA-Public Use
  Company Number: None

PATIENT
  Age: 55 Year
  Sex: Female
  Weight: 49.6 kg

DRUGS (1)
  1. FLOLAN [Suspect]
     Indication: PULMONARY HYPERTENSION
     Dosage: 28.5NG/KG/MIN WT=44KG CONTINUOUS IV DRIP
     Route: 041

REACTIONS (8)
  - ASCITES [None]
  - BODY TEMPERATURE DECREASED [None]
  - CACHEXIA [None]
  - DIARRHOEA [None]
  - FATIGUE [None]
  - PLEURAL EFFUSION [None]
  - POLYSEROSITIS [None]
  - WEIGHT DECREASED [None]
